FAERS Safety Report 4668508-1 (Version None)
Quarter: 2005Q2

REPORT INFORMATION
  Report Type: 
  Country: None (occurrence: None)
  Receive Date: 20050518
  Receipt Date: 20050429
  Transmission Date: 20051028
  Serious: Yes (Other)
  Sender: FDA-Public Use
  Company Number: D0046503A

PATIENT
  Age: 65 Year
  Sex: Female
  Weight: 202.4 kg

DRUGS (8)
  1. ARIXTRA [Suspect]
     Indication: KNEE ARTHROPLASTY
     Dosage: 2.5 MG/PER DAY
     Dates: start: 20050404, end: 20050411
  2. METOHEXAL [Concomitant]
  3. LISINOPRIL [Concomitant]
  4. IBUPROFEN [Concomitant]
  5. DIPYRONE [Concomitant]
  6. PANTOPRAZOLE SODIUM [Concomitant]
  7. PIRITRAMIDE [Concomitant]
  8. OLMESARTAN MEDOXOMIL) [Concomitant]

REACTIONS (4)
  - ANAEMIA POSTOPERATIVE [None]
  - DEEP VEIN THROMBOSIS [None]
  - DRUG INEFFECTIVE [None]
  - POST PROCEDURAL HAEMORRHAGE [None]
